FAERS Safety Report 6343145-1 (Version None)
Quarter: 2009Q3

REPORT INFORMATION
  Report Type: 
  Country: None (occurrence: None)
  Receive Date: 20090903
  Receipt Date: 20090824
  Transmission Date: 20100115
  Serious: Yes (Other)
  Sender: FDA-Public Use
  Company Number: 230423K09CAN

PATIENT
  Age: 50 Year
  Sex: Male

DRUGS (4)
  1. REBIF [Suspect]
     Indication: MULTIPLE SCLEROSIS
     Dosage: 22 MCG, 3 IN 1 WEEKS
     Dates: start: 20001129
  2. DETROL [Concomitant]
  3. ANTIDEPRESSANT (ANTIDEPRESSANTS) [Concomitant]
  4. CHLOMAZEPAM   (CLONAZEPAM) [Concomitant]

REACTIONS (13)
  - ASTHENIA [None]
  - BLISTER [None]
  - BLOOD FOLATE ABNORMAL [None]
  - BLOOD IRON INCREASED [None]
  - FATIGUE [None]
  - HAEMOCHROMATOSIS [None]
  - HYPERTROPHY [None]
  - PAIN [None]
  - PORPHYRIA NON-ACUTE [None]
  - PRURITUS [None]
  - RED BLOOD CELL ABNORMALITY [None]
  - SKIN PLAQUE [None]
  - VITAMIN B12 ABNORMAL [None]
